FAERS Safety Report 8339189 (Version 3)
Quarter: 2012Q4

REPORT INFORMATION
  Report Type: 
  Country: US (occurrence: US)
  Receive Date: 20120117
  Receipt Date: 20121121
  Transmission Date: 20130627
  Serious: Yes (Death)
  Sender: FDA-Public Use
  Company Number: US-ELI_LILLY_AND_COMPANY-US201201003534

PATIENT
  Age: 77 Year
  Sex: Male
  Weight: 71.02 kg

DRUGS (6)
  1. ZYPREXA RELPREVV [Suspect]
     Indication: SCHIZOAFFECTIVE DISORDER
     Dosage: 405 mg, every 2 weeks
     Route: 030
     Dates: start: 20110304
  2. LISINOPRIL [Concomitant]
     Dosage: 20 mg, UNK
     Route: 048
     Dates: start: 2008
  3. COGENTIN [Concomitant]
     Dosage: 0.5 mg, bid
     Route: 048
     Dates: start: 2008
  4. LITHIUM [Concomitant]
     Dosage: 300 mg, bid
     Route: 048
     Dates: start: 20111111
  5. KLONOPIN [Concomitant]
     Dosage: 1 mg, bid
     Route: 048
     Dates: start: 20111104, end: 20121110
  6. KLONOPIN [Concomitant]
     Dosage: 0.5 mg, bid
     Dates: start: 20111111

REACTIONS (3)
  - Cardiac arrest [Fatal]
  - Coronary artery occlusion [Fatal]
  - Prescribed overdose [Not Recovered/Not Resolved]
